FAERS Safety Report 8515271-X (Version None)
Quarter: 2012Q2

REPORT INFORMATION
  Report Type: 
  Country: None (occurrence: None)
  Receive Date: 20120406
  Receipt Date: 20090415
  Transmission Date: 20120825
  Serious: Yes (Other)
  Sender: FDA-Public Use
  Company Number: PHEH2009US03733

PATIENT
  Sex: Female

DRUGS (2)
  1. TASIGNA [Suspect]
     Indication: CHROMOSOME ANALYSIS ABNORMAL
     Dosage: 400 MG, BID, ORAL, 200 MG QD
     Route: 048
  2. TASIGNA [Suspect]
     Indication: CHRONIC MYELOID LEUKAEMIA
     Dosage: 400 MG, BID, ORAL, 200 MG QD
     Route: 048

REACTIONS (1)
  - BONE MARROW FAILURE [None]
